FAERS Safety Report 25811995 (Version 1)
Quarter: 2025Q3

REPORT INFORMATION
  Report Type: Report from Study
  Country: US (occurrence: US)
  Receive Date: 20250917
  Receipt Date: 20250917
  Transmission Date: 20251021
  Serious: Yes (Other)
  Sender: MYLAN
  Company Number: US-MYLANLABS-2025M1078411

PATIENT
  Age: 70 Year
  Sex: Female
  Weight: 90.72 kg

DRUGS (20)
  1. YUPELRI [Suspect]
     Active Substance: REVEFENACIN
     Indication: Chronic obstructive pulmonary disease
     Dosage: 175 PER 3 MICROGRAM PER MILLILITRE, QD (ONCE DAILY VIA NEBULIZER)
     Dates: start: 202509, end: 20250908
  2. YUPELRI [Suspect]
     Active Substance: REVEFENACIN
     Dosage: 175 PER 3 MICROGRAM PER MILLILITRE, QD (ONCE DAILY VIA NEBULIZER)
     Route: 055
     Dates: start: 202509, end: 20250908
  3. YUPELRI [Suspect]
     Active Substance: REVEFENACIN
     Dosage: 175 PER 3 MICROGRAM PER MILLILITRE, QD (ONCE DAILY VIA NEBULIZER)
     Route: 055
     Dates: start: 202509, end: 20250908
  4. YUPELRI [Suspect]
     Active Substance: REVEFENACIN
     Dosage: 175 PER 3 MICROGRAM PER MILLILITRE, QD (ONCE DAILY VIA NEBULIZER)
     Dates: start: 202509, end: 20250908
  5. BUDESONIDE [Suspect]
     Active Substance: BUDESONIDE
     Indication: Product used for unknown indication
  6. BUDESONIDE [Suspect]
     Active Substance: BUDESONIDE
     Route: 065
  7. BUDESONIDE [Suspect]
     Active Substance: BUDESONIDE
     Route: 065
  8. BUDESONIDE [Suspect]
     Active Substance: BUDESONIDE
  9. ARFORMOTEROL [Suspect]
     Active Substance: ARFORMOTEROL
     Indication: Product used for unknown indication
  10. ARFORMOTEROL [Suspect]
     Active Substance: ARFORMOTEROL
     Route: 065
  11. ARFORMOTEROL [Suspect]
     Active Substance: ARFORMOTEROL
     Route: 065
  12. ARFORMOTEROL [Suspect]
     Active Substance: ARFORMOTEROL
  13. FASENRA [Concomitant]
     Active Substance: BENRALIZUMAB
  14. FASENRA [Concomitant]
     Active Substance: BENRALIZUMAB
     Route: 065
  15. FASENRA [Concomitant]
     Active Substance: BENRALIZUMAB
     Route: 065
  16. FASENRA [Concomitant]
     Active Substance: BENRALIZUMAB
  17. ALBUTEROL [Concomitant]
     Active Substance: ALBUTEROL
  18. ALBUTEROL [Concomitant]
     Active Substance: ALBUTEROL
     Route: 065
  19. ALBUTEROL [Concomitant]
     Active Substance: ALBUTEROL
     Route: 065
  20. ALBUTEROL [Concomitant]
     Active Substance: ALBUTEROL

REACTIONS (2)
  - Rheumatoid arthritis [Recovering/Resolving]
  - Dyspnoea [Recovering/Resolving]

NARRATIVE: CASE EVENT DATE: 20250901
